FAERS Safety Report 9181803 (Version 1)
Quarter: 2013Q1

REPORT INFORMATION
  Report Type: Spontaneous
  Country: GB (occurrence: GB)
  Receive Date: 20130322
  Receipt Date: 20130322
  Transmission Date: 20140127
  Serious: Yes (Death)
  Sender: FDA-Public Use
  Company Number: GB-JNJFOC-20130311888

PATIENT
  Age: 48 Year
  Sex: Female
  Weight: 46.6 kg

DRUGS (15)
  1. DARUNAVIR [Suspect]
     Indication: HIV INFECTION
     Route: 048
     Dates: start: 20130113, end: 20130130
  2. EMTRICITABINE [Suspect]
     Indication: HIV INFECTION
     Route: 048
     Dates: start: 20121213, end: 20130130
  3. RITONAVIR [Suspect]
     Indication: HIV INFECTION
     Route: 048
     Dates: start: 20130113, end: 20130130
  4. TENOFOVIR [Suspect]
     Indication: HIV INFECTION
     Route: 048
     Dates: start: 20121213, end: 20130129
  5. CEFTRIAXONE [Concomitant]
     Route: 065
  6. CLINDAMYCIN [Concomitant]
     Route: 065
  7. CO-TRIMOXAZOLE [Concomitant]
     Route: 065
  8. DEXAMETHASONE [Concomitant]
     Route: 065
  9. FOLINIC ACID [Concomitant]
     Route: 065
  10. LEVETIRACETAM [Concomitant]
     Route: 065
  11. METRONIDAZOLE [Concomitant]
     Route: 065
  12. PHENYTOIN [Concomitant]
     Route: 065
  13. PYRIMETHAMINE [Concomitant]
     Route: 065
  14. RALTEGRAVIR [Concomitant]
     Route: 065
  15. SULFADIAZINE [Concomitant]
     Route: 065

REACTIONS (1)
  - Hyperglycaemia [Fatal]
